FAERS Safety Report 23320294 (Version 2)
Quarter: 2024Q1

REPORT INFORMATION
  Report Type: Report from Study
  Country: GB (occurrence: GB)
  Receive Date: 20231220
  Receipt Date: 20240104
  Transmission Date: 20240409
  Serious: No
  Sender: FDA-Public Use
  Company Number: GB-ABBVIE-5549718

PATIENT
  Age: 47 Year
  Sex: Female

DRUGS (2)
  1. SKYRIZI [Suspect]
     Active Substance: RISANKIZUMAB-RZAA
     Indication: Psoriasis
     Dosage: FORM STRENGTH: 150 MILLIGRAM
     Route: 058
     Dates: start: 202312
  2. PENICILLIN V [Concomitant]
     Active Substance: PENICILLIN V
     Indication: Splenectomy
     Dosage: FREQUENCY-DAILY

REACTIONS (1)
  - Product after taste [Unknown]

NARRATIVE: CASE EVENT DATE: 20231201
